FAERS Safety Report 8301059-1 (Version None)
Quarter: 2012Q2

REPORT INFORMATION
  Report Type: 
  Country: None (occurrence: None)
  Receive Date: 20120420
  Receipt Date: 20120411
  Transmission Date: 20120825
  Serious: Yes (Hospitalization)
  Sender: FDA-Public Use
  Company Number: US-JNJFOC-20120207154

PATIENT
  Sex: Male
  Weight: 71.22 kg

DRUGS (10)
  1. XARELTO [Suspect]
     Indication: ATRIAL FIBRILLATION
     Route: 048
  2. XARELTO [Suspect]
     Dosage: 2 MONTHS DURATION
     Route: 048
     Dates: start: 20111222
  3. FOSAMAX [Concomitant]
  4. XARELTO [Suspect]
     Dosage: 2 MONTHS DURATION
     Route: 048
     Dates: start: 20111222
  5. XARELTO [Suspect]
     Indication: CEREBROVASCULAR ACCIDENT PROPHYLAXIS
     Route: 048
  6. AMLODIPINE [Concomitant]
  7. METOPROLOL TARTRATE [Concomitant]
  8. LISINOPRIL [Concomitant]
  9. HYDROCHLOROTHIAZIDE [Concomitant]
  10. LIPITOR [Concomitant]

REACTIONS (2)
  - GASTRIC ULCER [None]
  - GASTRIC ULCER HAEMORRHAGE [None]
